FAERS Safety Report 10010014 (Version 1)
Quarter: 2014Q1

REPORT INFORMATION
  Report Type: Spontaneous
  Country: US (occurrence: US)
  Receive Date: 20140312
  Receipt Date: 20140312
  Transmission Date: 20141002
  Serious: No
  Sender: FDA-Public Use
  Company Number: US-INCYTE CORPORATION-2013IN000910

PATIENT
  Age: 59 Year
  Sex: Female

DRUGS (2)
  1. JAKAFI [Suspect]
     Indication: HAEMATOLOGICAL MALIGNANCY
     Dosage: 5 MG, BID
     Route: 048
     Dates: start: 20130211
  2. JAKAFI [Suspect]
     Dosage: 10 MG, BID

REACTIONS (5)
  - Diarrhoea [Not Recovered/Not Resolved]
  - Tenderness [Not Recovered/Not Resolved]
  - Malaise [Not Recovered/Not Resolved]
  - Drug dose omission [Unknown]
  - Contusion [Not Recovered/Not Resolved]
